FAERS Safety Report 17419048 (Version 1)
Quarter: 2020Q1

REPORT INFORMATION
  Report Type: Spontaneous
  Country: CA (occurrence: CA)
  Receive Date: 20200214
  Receipt Date: 20200214
  Transmission Date: 20200409
  Serious: Yes (Hospitalization, Other)
  Sender: FDA-Public Use
  Company Number: CA-TEVA-2020-CA-1183360

PATIENT
  Age: 52 Year
  Sex: Female

DRUGS (3)
  1. VITAMIN D [Concomitant]
     Active Substance: VITAMIN D NOS
  2. MORPHINE SULFATE. [Suspect]
     Active Substance: MORPHINE SULFATE
     Indication: RENAL SURGERY
     Route: 048
  3. ACETAMINOPHEN. [Concomitant]
     Active Substance: ACETAMINOPHEN

REACTIONS (10)
  - Pruritus [Unknown]
  - Nausea [Unknown]
  - Chest pain [Unknown]
  - Dizziness [Unknown]
  - Documented hypersensitivity to administered product [Unknown]
  - Dyspnoea [Unknown]
  - Heart rate increased [Unknown]
  - Palpitations [Unknown]
  - Rash [Unknown]
  - Blood pressure increased [Unknown]
